FAERS Safety Report 7814888-5 (Version None)
Quarter: 2011Q4

REPORT INFORMATION
  Report Type: 
  Country: None (occurrence: None)
  Receive Date: 20111014
  Receipt Date: 20111012
  Transmission Date: 20120403
  Serious: Yes (Life-Threatening, Hospitalization)
  Sender: FDA-Public Use
  Company Number: GB-B.I. PHARMACEUTICALS,INC./RIDGEFIELD-2011-UK-01058UK

PATIENT
  Sex: Male
  Weight: 83.5 kg

DRUGS (4)
  1. LISINOPRIL [Concomitant]
     Indication: HYPERTENSION
     Dosage: 5 MG
     Route: 048
     Dates: start: 20010402
  2. SIMVASTATIN [Concomitant]
     Indication: BLOOD CHOLESTEROL INCREASED
     Dosage: 40 MG
     Route: 048
     Dates: start: 20071105
  3. FELODIPINE [Concomitant]
     Indication: HYPERTENSION
     Dosage: 2.5 MG
     Route: 048
     Dates: start: 20051027
  4. PRADAXA [Suspect]
     Indication: HIP ARTHROPLASTY
     Dosage: 110 MG
     Route: 048
     Dates: start: 20110127, end: 20110203

REACTIONS (5)
  - VOMITING [None]
  - DIZZINESS [None]
  - MELAENA [None]
  - DUODENAL ULCER [None]
  - NAUSEA [None]
